FAERS Safety Report 5142965-9 (Version None)
Quarter: 2006Q4

REPORT INFORMATION
  Report Type: 
  Country: None (occurrence: None)
  Receive Date: 20061103
  Receipt Date: 20061025
  Transmission Date: 20070319
  Serious: Yes (Hospitalization)
  Sender: FDA-Public Use
  Company Number: GB-JNJFOC-20061007000

PATIENT
  Sex: Female
  Weight: 3.1 kg

DRUGS (2)
  1. REMICADE [Suspect]
     Indication: DRUG EXPOSURE VIA BREAST MILK
  2. REMICADE [Suspect]
     Indication: DRUG EXPOSURE DURING PREGNANCY

REACTIONS (4)
  - DIARRHOEA [None]
  - FLOPPY INFANT [None]
  - JAUNDICE [None]
  - THYROXINE DECREASED [None]
